FAERS Safety Report 6068967-6 (Version None)
Quarter: 2009Q1

REPORT INFORMATION
  Report Type: 
  Country: None (occurrence: None)
  Receive Date: 20090206
  Receipt Date: 20090127
  Transmission Date: 20090719
  Serious: Yes (Death)
  Sender: FDA-Public Use
  Company Number: AU-WATSON-2009-00424

PATIENT
  Age: 78 Year
  Sex: Male

DRUGS (1)
  1. COLCHICINE (WATSON LABORATORIES) [Suspect]
     Indication: ARTHRALGIA
     Dosage: 0.5 MG, TID
     Route: 048

REACTIONS (6)
  - DISSEMINATED INTRAVASCULAR COAGULATION [None]
  - LEUKOCYTOSIS [None]
  - LEUKOPENIA [None]
  - METABOLIC ACIDOSIS [None]
  - PULMONARY OEDEMA [None]
  - RENAL FAILURE ACUTE [None]
